FAERS Safety Report 21850198 (Version 1)
Quarter: 2023Q1

REPORT INFORMATION
  Report Type: Spontaneous
  Country: US (occurrence: US)
  Receive Date: 20230111
  Receipt Date: 20230111
  Transmission Date: 20230418
  Serious: No
  Sender: FDA-Public Use
  Company Number: US-MYLANLABS-2022M1138870

PATIENT
  Sex: Female
  Weight: 68.04 kg

DRUGS (1)
  1. DOXEPIN HYDROCHLORIDE [Suspect]
     Active Substance: DOXEPIN HYDROCHLORIDE
     Indication: Sleep disorder
     Dosage: UNK UNK, PM
     Route: 048

REACTIONS (2)
  - Weight increased [Unknown]
  - Dry mouth [Unknown]
